FAERS Safety Report 4643054-X (Version None)
Quarter: 2005Q2

REPORT INFORMATION
  Report Type: 
  Country: None (occurrence: None)
  Receive Date: 20050421
  Receipt Date: 20050408
  Transmission Date: 20051028
  Serious: Yes (Other)
  Sender: FDA-Public Use
  Company Number: 2005057364

PATIENT
  Age: 66 Year
  Sex: Female

DRUGS (1)
  1. BEXTRA [Suspect]
     Indication: MUSCULOSKELETAL PAIN
     Dosage: 40 MG (40 MG, 1 IN 1 D), ORAL
     Route: 048
     Dates: start: 20050301, end: 20050301

REACTIONS (4)
  - ABDOMINAL PAIN UPPER [None]
  - INSOMNIA [None]
  - MALAISE [None]
  - PRURITUS [None]
